FAERS Safety Report 18569802 (Version 1)
Quarter: 2020Q4

REPORT INFORMATION
  Report Type: Spontaneous
  Country: US (occurrence: US)
  Receive Date: 20201202
  Receipt Date: 20201202
  Transmission Date: 20210114
  Serious: Yes (Hospitalization)
  Sender: FDA-Public Use
  Company Number: None

PATIENT
  Age: 40 Year
  Sex: Female
  Weight: 162 kg

DRUGS (9)
  1. TYLENOL [Concomitant]
     Active Substance: ACETAMINOPHEN
  2. ZYRTEC [Concomitant]
     Active Substance: CETIRIZINE HYDROCHLORIDE
  3. MULTIVITAMIN [Concomitant]
     Active Substance: VITAMINS
  4. OLANZAPINE 40 MG [Suspect]
     Active Substance: OLANZAPINE
  5. ALOXI [Suspect]
     Active Substance: PALONOSETRON HYDROCHLORIDE
  6. DEXAMETHASONE 36MG [Suspect]
     Active Substance: DEXAMETHASONE
  7. ADVIR INHALOR [Concomitant]
  8. FOSAPREPITANT DIMEGLUMINE?150 MG [Suspect]
     Active Substance: FOSAPREPITANT DIMEGLUMINE
  9. LEXAPRO [Concomitant]
     Active Substance: ESCITALOPRAM OXALATE

REACTIONS (6)
  - Folliculitis [None]
  - Cyst rupture [None]
  - Soft tissue inflammation [None]
  - Soft tissue necrosis [None]
  - Wound infection bacterial [None]
  - Corynebacterium test positive [None]

NARRATIVE: CASE EVENT DATE: 20201125
